FAERS Safety Report 23134542 (Version 3)
Quarter: 2025Q1

REPORT INFORMATION
  Report Type: Spontaneous
  Country: US (occurrence: US)
  Receive Date: 20231101
  Receipt Date: 20250120
  Transmission Date: 20250408
  Serious: No
  Sender: SANOFI AVENTIS
  Company Number: US-SA-SAC20231027000911

PATIENT
  Age: 63 Year
  Sex: Male
  Weight: 135 kg

DRUGS (26)
  1. SARCLISA [Suspect]
     Active Substance: ISATUXIMAB-IRFC
     Indication: Plasma cell myeloma
     Dosage: 1374 MG, BIM
     Route: 041
     Dates: start: 20230822, end: 202501
  2. SARCLISA [Suspect]
     Active Substance: ISATUXIMAB-IRFC
     Dosage: 1176 MG, QOW
     Route: 041
     Dates: start: 20250109
  3. AMLODIPINE [Concomitant]
     Active Substance: AMLODIPINE BESYLATE
  4. AMLODIPINE [Concomitant]
     Active Substance: AMLODIPINE BESYLATE
  5. ALBUTEROL [Concomitant]
     Active Substance: ALBUTEROL
  6. CETIRIZINE [Concomitant]
     Active Substance: CETIRIZINE HYDROCHLORIDE
  7. FLONASE [Concomitant]
     Active Substance: FLUTICASONE PROPIONATE
  8. SODIUM CHLORIDE [Concomitant]
     Active Substance: SODIUM CHLORIDE
  9. ASPIRIN [Concomitant]
     Active Substance: ASPIRIN
  10. EPINEPHRINE [Concomitant]
     Active Substance: EPINEPHRINE
  11. HYDROCORTISONE SODIUM SUCCINATE [Concomitant]
     Active Substance: HYDROCORTISONE SODIUM SUCCINATE
  12. TYLENOL [Concomitant]
     Active Substance: ACETAMINOPHEN
  13. POTASSIUM CHLORIDE [Concomitant]
     Active Substance: POTASSIUM CHLORIDE
  14. PANTOPRAZOLE [Concomitant]
     Active Substance: PANTOPRAZOLE
  15. CALCIUM CARBONATE [Concomitant]
     Active Substance: CALCIUM CARBONATE
  16. BENADRYL [Concomitant]
     Active Substance: DIPHENHYDRAMINE HYDROCHLORIDE
  17. HEPARIN [Concomitant]
     Active Substance: HEPARIN SODIUM
  18. PROCHLORPERAZINE [Concomitant]
     Active Substance: PROCHLORPERAZINE
  19. POMALYST [Concomitant]
     Active Substance: POMALIDOMIDE
  20. POMALYST [Concomitant]
     Active Substance: POMALIDOMIDE
  21. METOPROLOL SUCCINATE [Concomitant]
     Active Substance: METOPROLOL SUCCINATE
  22. PEPCID [Concomitant]
     Active Substance: FAMOTIDINE
  23. ACYCLOVIR [Concomitant]
     Active Substance: ACYCLOVIR
  24. ACYCLOVIR [Concomitant]
     Active Substance: ACYCLOVIR
  25. VITAMIN D3 [Concomitant]
     Active Substance: CHOLECALCIFEROL
  26. FUROSEMIDE [Concomitant]
     Active Substance: FUROSEMIDE

REACTIONS (2)
  - Weight decreased [Unknown]
  - Weight decreased [Recovered/Resolved]

NARRATIVE: CASE EVENT DATE: 20231024
